FAERS Safety Report 12575006 (Version 1)
Quarter: 2016Q3

REPORT INFORMATION
  Report Type: Spontaneous
  Country: US (occurrence: US)
  Receive Date: 20160720
  Receipt Date: 20160720
  Transmission Date: 20161109
  Serious: No
  Sender: FDA-Public Use
  Company Number: US-ASTELLAS-2015US040768

PATIENT
  Age: 66 Year
  Sex: Male

DRUGS (2)
  1. VESICARE [Suspect]
     Active Substance: SOLIFENACIN SUCCINATE
     Route: 065
     Dates: start: 20151103
  2. VESICARE [Suspect]
     Active Substance: SOLIFENACIN SUCCINATE
     Indication: POLLAKIURIA
     Route: 065
     Dates: start: 20151101, end: 20151103

REACTIONS (4)
  - Hunger [Recovering/Resolving]
  - Dizziness [Recovered/Resolved]
  - Abdominal discomfort [Recovering/Resolving]
  - Disorientation [Recovered/Resolved]

NARRATIVE: CASE EVENT DATE: 20151101
